FAERS Safety Report 5017499-2 (Version None)
Quarter: 2006Q2

REPORT INFORMATION
  Report Type: 
  Country: None (occurrence: None)
  Receive Date: 20060601
  Receipt Date: 20060601
  Transmission Date: 20061013
  Serious: Yes (Life-Threatening, Hospitalization)
  Sender: FDA-Public Use
  Company Number: None

PATIENT
  Age: 62 Year
  Sex: Female
  Weight: 68.0396 kg

DRUGS (2)
  1. PLAVIX [Suspect]
     Indication: ANGIOPLASTY
     Dosage: 1 TABLET   DAILY
     Dates: start: 20060111, end: 20060116
  2. PLAVIX [Suspect]
     Indication: ARTERIAL OCCLUSIVE DISEASE
     Dosage: 1 TABLET   DAILY
     Dates: start: 20060111, end: 20060116

REACTIONS (3)
  - GASTRIC DISORDER [None]
  - HAEMORRHAGE [None]
  - RENAL FAILURE [None]
